FAERS Safety Report 6864222-2 (Version None)
Quarter: 2010Q3

REPORT INFORMATION
  Report Type: 
  Country: None (occurrence: None)
  Receive Date: 20100720
  Receipt Date: 20100708
  Transmission Date: 20110219
  Serious: Yes (Other)
  Sender: FDA-Public Use
  Company Number: 7010451

PATIENT
  Age: 60 Year
  Sex: Female
  Weight: 83 kg

DRUGS (2)
  1. REBIF [Suspect]
     Indication: MULTIPLE SCLEROSIS
     Dosage: 3 IN 1 WK; 44 MCG, 3 IN 1WK , SUBCUTANEOUS
     Route: 058
     Dates: start: 20100707
  2. AVONEX [Concomitant]

REACTIONS (2)
  - MASS [None]
  - PRECANCEROUS CELLS PRESENT [None]
